FAERS Safety Report 21219356 (Version 1)
Quarter: 2022Q3

REPORT INFORMATION
  Report Type: Spontaneous
  Country: CN (occurrence: CN)
  Receive Date: 20220817
  Receipt Date: 20220817
  Transmission Date: 20221026
  Serious: Yes (Hospitalization, Other)
  Sender: FDA-Public Use
  Company Number: CN-SUN PHARMACEUTICAL INDUSTRIES LTD-2022R1-348876

PATIENT
  Age: 69 Year
  Sex: Female

DRUGS (3)
  1. LORATADINE [Interacting]
     Active Substance: LORATADINE
     Indication: Rhinitis allergic
     Dosage: UNK
     Route: 048
     Dates: start: 20201025
  2. METOPROLOL [Interacting]
     Active Substance: METOPROLOL
     Indication: Tachycardia
     Dosage: UNK
     Route: 048
     Dates: start: 20201031
  3. DACOMITINIB [Interacting]
     Active Substance: DACOMITINIB
     Indication: Non-small cell lung cancer
     Dosage: 45 MILLIGRAM, DAILY
     Route: 048
     Dates: start: 20200929

REACTIONS (3)
  - Cholestasis [Recovered/Resolved]
  - Drug interaction [Unknown]
  - Drug-induced liver injury [Recovered/Resolved]
